FAERS Safety Report 6577681-X (Version None)
Quarter: 2010Q1

REPORT INFORMATION
  Report Type: 
  Country: None (occurrence: None)
  Receive Date: 20100211
  Receipt Date: 20100208
  Transmission Date: 20100710
  Serious: Yes (Death)
  Sender: FDA-Public Use
  Company Number: PHHY2010RS06628

PATIENT
  Sex: Male
  Weight: 56 kg

DRUGS (1)
  1. EXJADE [Suspect]
     Indication: HAEMOCHROMATOSIS
     Dosage: 750 MG DAILY
     Dates: start: 20091204

REACTIONS (1)
  - CARDIAC ARREST [None]
